FAERS Safety Report 12254985 (Version 3)
Quarter: 2017Q2

REPORT INFORMATION
  Report Type: Spontaneous
  Country: US (occurrence: US)
  Receive Date: 20160411
  Receipt Date: 20170621
  Transmission Date: 20170830
  Serious: Yes (Other)
  Sender: FDA-Public Use
  Company Number: US-PFIZER INC-2016182696

PATIENT
  Age: 73 Year
  Sex: Male

DRUGS (10)
  1. SUTENT [Suspect]
     Active Substance: SUNITINIB MALATE
     Indication: METASTATIC RENAL CELL CARCINOMA
     Dosage: 50 MG, UNK
     Dates: start: 201507
  2. SUTENT [Suspect]
     Active Substance: SUNITINIB MALATE
     Indication: METASTASES TO LUNG
     Dosage: 50 MG, CYCLIC, (14 DAYS ON 7 DAYS OFF)
     Route: 048
     Dates: start: 20140420
  3. SUTENT [Suspect]
     Active Substance: SUNITINIB MALATE
     Indication: RENAL CANCER
     Dosage: 50 MG, UNK
     Dates: start: 20140630
  4. OXYCONTIN [Concomitant]
     Active Substance: OXYCODONE HYDROCHLORIDE
     Indication: PAIN
     Dosage: UNK
  5. LIDOCAINE. [Concomitant]
     Active Substance: LIDOCAINE
     Indication: PAIN
     Dosage: UNK
  6. LORAZEPAM. [Concomitant]
     Active Substance: LORAZEPAM
     Indication: ANXIETY
     Dosage: UNK
  7. OXYCODONE [Concomitant]
     Active Substance: OXYCODONE
     Indication: PAIN
     Dosage: UNK
  8. SUTENT [Suspect]
     Active Substance: SUNITINIB MALATE
     Dosage: 50 MG, CYCLIC, (DAILY 2 WEEKS ON ONE WEEK)
  9. XGEVA [Concomitant]
     Active Substance: DENOSUMAB
     Dosage: UNK
     Dates: start: 201502
  10. LOVENOX [Concomitant]
     Active Substance: ENOXAPARIN SODIUM
     Indication: DEEP VEIN THROMBOSIS
     Dosage: UNK

REACTIONS (20)
  - Blood pressure increased [Unknown]
  - Back pain [Unknown]
  - Weight increased [Unknown]
  - Abdominal discomfort [Recovering/Resolving]
  - Asthenia [Unknown]
  - Oedema [Unknown]
  - Pain in extremity [Unknown]
  - Anaemia [Unknown]
  - Neoplasm progression [Unknown]
  - Anaemia macrocytic [Unknown]
  - Ecchymosis [Unknown]
  - Upper respiratory tract congestion [Recovering/Resolving]
  - Hypothyroidism [Recovered/Resolved]
  - Skin discolouration [Unknown]
  - Fatigue [Unknown]
  - Temperature intolerance [Unknown]
  - Weight decreased [Unknown]
  - Cough [Recovering/Resolving]
  - Leukopenia [Unknown]
  - Constipation [Recovering/Resolving]

NARRATIVE: CASE EVENT DATE: 201602
